FAERS Safety Report 7776107-8 (Version None)
Quarter: 2011Q3

REPORT INFORMATION
  Report Type: 
  Country: None (occurrence: None)
  Receive Date: 20110925
  Receipt Date: 20110613
  Transmission Date: 20111222
  Serious: Yes (Life-Threatening)
  Sender: FDA-Public Use
  Company Number: PHEH2011US04272

PATIENT
  Sex: Female

DRUGS (1)
  1. TOBI [Suspect]
     Indication: CYSTIC FIBROSIS
     Dosage: 300 MG, BID, USING NEBULIZER
     Dates: start: 20081126, end: 20110727

REACTIONS (2)
  - DYSPNOEA [None]
  - APPARENT DEATH [None]
